FAERS Safety Report 8313035-3 (Version None)
Quarter: 2012Q2

REPORT INFORMATION
  Report Type: 
  Country: None (occurrence: None)
  Receive Date: 20120426
  Receipt Date: 20120416
  Transmission Date: 20120825
  Serious: Yes (Hospitalization)
  Sender: FDA-Public Use
  Company Number: IT-TEVA-334365ISR

PATIENT
  Sex: Male

DRUGS (11)
  1. ONDANSETRON [Concomitant]
     Dates: start: 20111123, end: 20111125
  2. PARACETAMOLO [Concomitant]
     Dates: start: 20111128, end: 20111128
  3. CLORFENAMINA [Concomitant]
     Dates: start: 20111128, end: 20111128
  4. ALLOPURINOL [Concomitant]
  5. IFOSFAMIDE [Suspect]
     Indication: NON-HODGKIN'S LYMPHOMA RECURRENT
     Dosage: 3400 MILLIGRAM;
     Route: 042
     Dates: start: 20111123, end: 20111125
  6. MABTHERA [Suspect]
     Indication: NON-HODGKIN'S LYMPHOMA RECURRENT
     Dosage: 600 MILLIGRAM;
     Route: 042
     Dates: start: 20111128, end: 20111128
  7. MESNA [Concomitant]
     Dates: start: 20111123, end: 20111125
  8. CARBOPLATIN [Suspect]
     Indication: NON-HODGKIN'S LYMPHOMA RECURRENT
     Dosage: 670 MILLIGRAM;
     Route: 042
     Dates: start: 20111123, end: 20111125
  9. MYCOSTATIN [Concomitant]
     Route: 048
     Dates: start: 20111201, end: 20111205
  10. ETOPOSIDE [Suspect]
     Indication: NON-HODGKIN'S LYMPHOMA RECURRENT
     Dosage: 120 MILLIGRAM;
     Route: 042
     Dates: start: 20111123, end: 20111125
  11. NEULASTA [Concomitant]
     Route: 058
     Dates: start: 20111126, end: 20111126

REACTIONS (6)
  - HYPERPYREXIA [None]
  - PNEUMONIA [None]
  - MUCOSAL INFLAMMATION [None]
  - NEUTROPENIA [None]
  - APLASIA [None]
  - THROMBOCYTOPENIA [None]
